FAERS Safety Report 4689177-0 (Version None)
Quarter: 2005Q2

REPORT INFORMATION
  Report Type: 
  Country: None (occurrence: None)
  Receive Date: 20050613
  Receipt Date: 20050601
  Transmission Date: 20051028
  Serious: Yes (Hospitalization)
  Sender: FDA-Public Use
  Company Number: 2005UW08540

PATIENT
  Age: 52 Year
  Sex: Male

DRUGS (2)
  1. CRESTOR [Suspect]
     Indication: BLOOD CHOLESTEROL INCREASED
     Route: 048
     Dates: start: 20050518, end: 20050519
  2. CRESTOR [Suspect]
     Route: 048
     Dates: start: 20050520

REACTIONS (2)
  - RENAL FAILURE [None]
  - RETROPERITONEAL FIBROSIS [None]
